FAERS Safety Report 5604223-5 (Version None)
Quarter: 2008Q1

REPORT INFORMATION
  Report Type: 
  Country: None (occurrence: None)
  Receive Date: 20080123
  Receipt Date: 20080114
  Transmission Date: 20080703
  Serious: Yes (Death)
  Sender: FDA-Public Use
  Company Number: B0503141A

PATIENT
  Age: 31 Year
  Sex: Female

DRUGS (5)
  1. LAMOTRIGINE [Suspect]
     Dosage: ORAL
     Route: 048
  2. PAXIL [Suspect]
     Dosage: ORAL
     Route: 048
  3. QUETIAPINE FUMARATE [Suspect]
     Dosage: ORAL
     Route: 048
  4. PARACETAMOL (FORMULATION UNKNOWN) (ACETAMINOPHEN) [Suspect]
     Dosage: ORAL
     Route: 048
  5. DIPHENHYDRAMINE (FORMULATION UNKNOWN) (DIPHENHYDRAMINE) [Suspect]
     Dosage: ORAL
     Route: 048

REACTIONS (21)
  - ACUTE PULMONARY OEDEMA [None]
  - ATRIAL FIBRILLATION [None]
  - BLOOD CREATINE PHOSPHOKINASE INCREASED [None]
  - BLOOD PH DECREASED [None]
  - BLOOD POTASSIUM INCREASED [None]
  - BLOOD PRESSURE DIASTOLIC DECREASED [None]
  - BLOOD PRESSURE SYSTOLIC INCREASED [None]
  - BLOOD SODIUM INCREASED [None]
  - BRAIN HERNIATION [None]
  - BRAIN OEDEMA [None]
  - CARDIAC ARREST [None]
  - COMA [None]
  - COMPLETED SUICIDE [None]
  - HAEMOGLOBIN DECREASED [None]
  - HEART RATE DECREASED [None]
  - MULTIPLE DRUG OVERDOSE [None]
  - PCO2 INCREASED [None]
  - PO2 INCREASED [None]
  - RESPIRATORY DEPRESSION [None]
  - STATUS EPILEPTICUS [None]
  - VENTRICULAR TACHYCARDIA [None]
